FAERS Safety Report 19391069 (Version 1)
Quarter: 2021Q2

REPORT INFORMATION
  Report Type: Spontaneous
  Country: FR (occurrence: FR)
  Receive Date: 20210608
  Receipt Date: 20210608
  Transmission Date: 20210717
  Serious: Yes (Hospitalization, Other)
  Sender: FDA-Public Use
  Company Number: FR-PFIZER INC-2021580399

PATIENT
  Age: 89 Year
  Sex: Female

DRUGS (14)
  1. EUPANTOL [Suspect]
     Active Substance: PANTOPRAZOLE SODIUM
     Dosage: UNK UNK, QD
     Route: 048
  2. TENORMINE [Concomitant]
     Active Substance: ATENOLOL
     Dosage: 2 DOSAGE FORM DAILY
     Route: 048
  3. MODOPAR [Concomitant]
     Active Substance: BENSERAZIDE HYDROCHLORIDE\LEVODOPA
     Dosage: 3 DOSAGE FORM WEEKLY
     Route: 048
  4. MODOPAR [Concomitant]
     Active Substance: BENSERAZIDE HYDROCHLORIDE\LEVODOPA
     Dosage: UNK UNK, 1/WEEK
     Route: 048
  5. ATACAND [Concomitant]
     Active Substance: CANDESARTAN CILEXETIL
     Dosage: 1 DOSAGE FORM DAILY
     Route: 048
  6. HEMIGOXINE [Concomitant]
     Active Substance: DIGOXIN
     Dosage: UNK UNK, QD
     Route: 048
  7. ELIQUIS [Suspect]
     Active Substance: APIXABAN
     Indication: CEREBROVASCULAR ACCIDENT PROPHYLAXIS
     Dosage: 2 DOSAGE FORM DAILY
     Route: 048
  8. ELIQUIS [Suspect]
     Active Substance: APIXABAN
     Indication: ATRIAL FIBRILLATION
     Dosage: UNK UNK, QD
     Route: 048
  9. MACROGOL [Concomitant]
     Active Substance: POLYETHYLENE GLYCOLS
     Dosage: UNK
     Route: 048
  10. ATACAND [Concomitant]
     Active Substance: CANDESARTAN CILEXETIL
     Dosage: UNK UNK, QD
     Route: 048
  11. LERCANIDIPINE [Concomitant]
     Active Substance: LERCANIDIPINE
     Dosage: UNK UNK, QD
     Route: 048
  12. FEMARA [Concomitant]
     Active Substance: LETROZOLE
     Dosage: UNK UNK, QD
     Route: 048
  13. TENORMINE [Concomitant]
     Active Substance: ATENOLOL
     Dosage: UNK UNK, QD
     Route: 048
  14. HEMIGOXINE [Concomitant]
     Active Substance: DIGOXIN
     Dosage: 1 DOSAGE FORM DAILY
     Route: 048

REACTIONS (1)
  - Cerebral haematoma [Recovered/Resolved]

NARRATIVE: CASE EVENT DATE: 20210401
